FAERS Safety Report 9244755 (Version 1)
Quarter: 2013Q1

REPORT INFORMATION
  Report Type: Spontaneous
  Country: US (occurrence: None)
  Receive Date: 20121130
  Receipt Date: 20121130
  Transmission Date: 20140127
  Serious: Yes (Other)
  Sender: FDA-Public Use
  Company Number: PHEH2012US014450

PATIENT
  Age: 86 Year
  Sex: Male

DRUGS (8)
  1. LAMISIL [Suspect]
     Indication: FUNGAL INFECTION
     Dates: start: 2011
  2. ATENOLOL (ATENOLOL) [Concomitant]
  3. FUROSEMIDE (FUROSEMIDE) [Concomitant]
  4. WARFARIN (WARFARIN) [Concomitant]
  5. DIGOXIN (DIGOXIN) [Concomitant]
  6. TERAZOSIN (TERAZOSIN) [Concomitant]
  7. LEVOTHYROXINE (LEVOTHYROXINE) [Concomitant]
  8. MIRTAZAPINE (MIRTAZAPINE) [Concomitant]

REACTIONS (1)
  - Ageusia [None]
